FAERS Safety Report 14784245 (Version 1)
Quarter: 2018Q2

REPORT INFORMATION
  Report Type: Spontaneous
  Country: US (occurrence: US)
  Receive Date: 20180420
  Receipt Date: 20180420
  Transmission Date: 20180711
  Serious: Yes (Hospitalization)
  Sender: FDA-Public Use
  Company Number: US-SA-2018SA102940

PATIENT
  Age: 62 Year
  Sex: Female

DRUGS (1)
  1. BISMUTH SUBSALICYLATE. [Suspect]
     Active Substance: BISMUTH SUBSALICYLATE
     Route: 065

REACTIONS (14)
  - PCO2 decreased [Recovering/Resolving]
  - Confusional state [Recovered/Resolved]
  - Overdose [Unknown]
  - Drug level increased [Unknown]
  - Diarrhoea [Unknown]
  - Bradyphrenia [Recovered/Resolved]
  - Activated partial thromboplastin time prolonged [Recovering/Resolving]
  - Blood bicarbonate decreased [Recovering/Resolving]
  - International normalised ratio increased [Recovered/Resolved]
  - Prothrombin level decreased [Recovering/Resolving]
  - Prothrombin time prolonged [Recovering/Resolving]
  - Coagulopathy [Recovering/Resolving]
  - Coagulation factor V level decreased [Recovering/Resolving]
  - Disorientation [Recovered/Resolved]
